FAERS Safety Report 7750697-3 (Version None)
Quarter: 2011Q3

REPORT INFORMATION
  Report Type: 
  Country: None (occurrence: None)
  Receive Date: 20110914
  Receipt Date: 20110906
  Transmission Date: 20111222
  Serious: Yes (Other)
  Sender: FDA-Public Use
  Company Number: CA-JNJFOC-20110903729

PATIENT
  Sex: Female
  Weight: 64 kg

DRUGS (8)
  1. REMICADE [Suspect]
     Route: 042
     Dates: start: 20110906
  2. ARAVA [Concomitant]
  3. HYDROCHLOROTHIAZIDE [Concomitant]
  4. REMICADE [Suspect]
     Indication: ANKYLOSING SPONDYLITIS
     Route: 042
     Dates: start: 20070101, end: 20110101
  5. REMICADE [Suspect]
     Indication: CROHN'S DISEASE
     Route: 042
     Dates: start: 20070101, end: 20110101
  6. REMICADE [Suspect]
     Route: 042
     Dates: start: 20110906
  7. VITAMIN D [Concomitant]
  8. LANSOPRAZOLE [Concomitant]

REACTIONS (1)
  - PARAESTHESIA [None]
